FAERS Safety Report 4293976-7 (Version None)
Quarter: 2004Q1

REPORT INFORMATION
  Report Type: 
  Country: None (occurrence: None)
  Receive Date: 20040211
  Receipt Date: 20040122
  Transmission Date: 20041129
  Serious: Yes (Hospitalization)
  Sender: FDA-Public Use
  Company Number: JP_031202368

PATIENT
  Age: 78 Year
  Sex: Female

DRUGS (4)
  1. DOBUTREX [Suspect]
     Indication: MYOCARDIAL INFARCTION
     Dosage: 3 UG/KG/MIN
  2. BUPIVACAINE [Concomitant]
  3. DOPAMINE HYDROCHLORIDE [Concomitant]
  4. NITROGLYCERIN [Concomitant]

REACTIONS (3)
  - ATRIAL FIBRILLATION [None]
  - CARDIAC INDEX DECREASED [None]
  - CARDIOMYOPATHY [None]
